FAERS Safety Report 17931963 (Version 1)
Quarter: 2020Q2

REPORT INFORMATION
  Report Type: Report from Study
  Country: None (occurrence: US)
  Receive Date: 20200624
  Receipt Date: 20200624
  Transmission Date: 20200714
  Serious: Yes (Other)
  Sender: FDA-Public Use
  Company Number: US-ABBVIE-20K-163-3452194-00

PATIENT
  Age: 78 Year
  Sex: Female

DRUGS (1)
  1. HUMIRA [Suspect]
     Active Substance: ADALIMUMAB
     Indication: RHEUMATOID ARTHRITIS
     Route: 058

REACTIONS (12)
  - Mobility decreased [Not Recovered/Not Resolved]
  - Fall [Unknown]
  - Synovitis [Not Recovered/Not Resolved]
  - Pain in extremity [Not Recovered/Not Resolved]
  - Pain in extremity [Not Recovered/Not Resolved]
  - Joint dislocation [Recovering/Resolving]
  - Neoplasm [Unknown]
  - Rheumatoid nodule [Recovering/Resolving]
  - Porokeratosis [Recovering/Resolving]
  - Pain in extremity [Recovering/Resolving]
  - Hypoaesthesia [Not Recovered/Not Resolved]
  - Neuropathy peripheral [Not Recovered/Not Resolved]

NARRATIVE: CASE EVENT DATE: 20200301
